FAERS Safety Report 13424641 (Version 2)
Quarter: 2017Q2

REPORT INFORMATION
  Report Type: Report from Study
  Country: CO (occurrence: CO)
  Receive Date: 20170410
  Receipt Date: 20170516
  Transmission Date: 20170830
  Serious: Yes (Death, Hospitalization)
  Sender: FDA-Public Use
  Company Number: PHHY2016CO106595

PATIENT
  Age: 36 Year
  Sex: Female
  Weight: 58 kg

DRUGS (1)
  1. AFINITOR [Suspect]
     Active Substance: EVEROLIMUS
     Indication: BREAST CANCER
     Dosage: 5 MG, BID
     Route: 048
     Dates: start: 20160726

REACTIONS (7)
  - Feeling abnormal [Unknown]
  - Incorrect dose administered [Unknown]
  - Sedation [Unknown]
  - Death [Fatal]
  - Asphyxia [Unknown]
  - Breast cancer recurrent [Unknown]
  - Lung disorder [Unknown]

NARRATIVE: CASE EVENT DATE: 20170405
